FAERS Safety Report 8867710 (Version 1)
Quarter: 2012Q4

REPORT INFORMATION
  Report Type: 
  Country: US (occurrence: US)
  Receive Date: 20121026
  Receipt Date: 20121026
  Transmission Date: 20130627
  Serious: No
  Sender: FDA-Public Use
  Company Number: US-AMGEN-USASP2012039999

PATIENT
  Sex: Female

DRUGS (2)
  1. ENBREL [Suspect]
     Indication: RHEUMATOID ARTHRITIS
     Dosage: 50 mg, qwk
     Dates: start: 20111130, end: 20120614
  2. METHOTREXATE [Concomitant]
     Dosage: 6 mg, qwk
     Dates: start: 20110701

REACTIONS (2)
  - Animal bite [Not Recovered/Not Resolved]
  - Infected bites [Not Recovered/Not Resolved]
